FAERS Safety Report 25278887 (Version 2)
Quarter: 2025Q3

REPORT INFORMATION
  Report Type: Report from Study
  Country: US (occurrence: US)
  Receive Date: 20250507
  Receipt Date: 20250903
  Transmission Date: 20251021
  Serious: Yes (Hospitalization)
  Sender: TAKEDA
  Company Number: US-TAKEDA-2024TUS094848

PATIENT
  Age: 74 Year
  Sex: Female

DRUGS (22)
  1. TEDUGLUTIDE [Suspect]
     Active Substance: TEDUGLUTIDE
     Indication: Short-bowel syndrome
     Dosage: 1.7 MILLIGRAM, QD
     Dates: start: 20200224, end: 20200626
  2. TEDUGLUTIDE [Suspect]
     Active Substance: TEDUGLUTIDE
     Dosage: 1.7 MILLIGRAM, 4/WEEK
     Dates: start: 20200706, end: 20200727
  3. TEDUGLUTIDE [Suspect]
     Active Substance: TEDUGLUTIDE
     Dosage: 1.7 MILLIGRAM, QD
     Dates: start: 20200727, end: 20201214
  4. TEDUGLUTIDE [Suspect]
     Active Substance: TEDUGLUTIDE
     Dosage: 1.7 MILLIGRAM, 4/WEEK
     Dates: start: 20201221, end: 20210412
  5. TEDUGLUTIDE [Suspect]
     Active Substance: TEDUGLUTIDE
     Dosage: 1.7 MILLIGRAM, 4/WEEK
     Dates: start: 20210427, end: 20210505
  6. TEDUGLUTIDE [Suspect]
     Active Substance: TEDUGLUTIDE
     Dosage: 1.7 MILLIGRAM, QD
     Dates: start: 20210505, end: 20220922
  7. TEDUGLUTIDE [Suspect]
     Active Substance: TEDUGLUTIDE
     Dosage: 1.7 MILLIGRAM, 4/WEEK
     Dates: start: 20220922, end: 20221005
  8. TEDUGLUTIDE [Suspect]
     Active Substance: TEDUGLUTIDE
     Dosage: 1.7 MILLIGRAM, QD
     Dates: start: 20221005
  9. MUPIROCIN [Concomitant]
     Active Substance: MUPIROCIN
     Indication: Wound
     Route: 061
  10. SIVEXTRO [Concomitant]
     Active Substance: TEDIZOLID PHOSPHATE
     Indication: Infection
  11. VENOFER [Concomitant]
     Active Substance: IRON SUCROSE
     Indication: Anaemia
     Dosage: 200 MILLIGRAM, 1/WEEK
     Dates: start: 20220825, end: 20220912
  12. POTASSIUM CHLORIDE [Concomitant]
     Active Substance: POTASSIUM CHLORIDE
     Indication: Hypokalaemia
     Dosage: UNK UNK, QD
     Dates: start: 20241028
  13. CETIRIZINE HCL [Concomitant]
     Active Substance: CETIRIZINE HYDROCHLORIDE
     Indication: Multiple allergies
  14. KLONOPIN [Concomitant]
     Active Substance: CLONAZEPAM
     Indication: Anxiety
  15. NORVASC [Concomitant]
     Active Substance: AMLODIPINE BESYLATE
     Indication: Hypertension
     Dosage: 5 MILLIGRAM, QD
     Dates: start: 20200619
  16. DURICEF [Concomitant]
     Active Substance: CEFADROXIL
     Indication: Skin infection
     Dosage: 500 MILLIGRAM, BID
     Dates: start: 20191211
  17. VITAMIN D3 [Concomitant]
     Active Substance: CHOLECALCIFEROL
     Indication: Vitamin D deficiency
  18. VOLTAREN [Concomitant]
     Active Substance: DICLOFENAC SODIUM
     Indication: Skin infection
     Dosage: 2 GRAM, QID
  19. METOPROLOL [Concomitant]
     Active Substance: METOPROLOL
     Indication: Hypertension
     Dosage: 25 MILLIGRAM, BID
     Dates: start: 20201204
  20. ZOFRAN [Concomitant]
     Active Substance: ONDANSETRON HYDROCHLORIDE
     Indication: Gastrooesophageal reflux disease
  21. PAROXETINE [Concomitant]
     Active Substance: PAROXETINE
     Indication: Depression
  22. PEPCID [Concomitant]
     Active Substance: FAMOTIDINE
     Indication: Short-bowel syndrome
     Dosage: 40 MILLIGRAM, QID
     Dates: start: 20210812

REACTIONS (8)
  - Ankle fracture [Recovered/Resolved]
  - Weight decreased [Recovered/Resolved]
  - Diarrhoea [Recovered/Resolved]
  - Blood urea increased [Recovered/Resolved]
  - Muscle spasms [Recovered/Resolved]
  - Blood creatine increased [Not Recovered/Not Resolved]
  - Fall [Recovered/Resolved]
  - Headache [Recovered/Resolved]

NARRATIVE: CASE EVENT DATE: 20240708
